FAERS Safety Report 5802670-X (Version None)
Quarter: 2008Q3

REPORT INFORMATION
  Report Type: 
  Country: None (occurrence: None)
  Receive Date: 20080702
  Receipt Date: 20080625
  Transmission Date: 20090109
  Serious: Yes (Death, Hospitalization)
  Sender: FDA-Public Use
  Company Number: 062-21880-08061579

PATIENT
  Age: 76 Year
  Sex: Female
  Weight: 62 kg

DRUGS (2)
  1. REVLIMID [Suspect]
     Indication: PLASMACYTOMA
     Dosage: 15 MG, MO, MI, FR, ORAL
     Route: 048
     Dates: start: 20080609, end: 20080620
  2. DEXAMETHASONE [Concomitant]

REACTIONS (1)
  - PAIN [None]
